FAERS Safety Report 21223309 (Version 1)
Quarter: 2022Q3

REPORT INFORMATION
  Report Type: Report from Study
  Country: US (occurrence: None)
  Receive Date: 20220817
  Receipt Date: 20220817
  Transmission Date: 20221026
  Serious: Yes (Hospitalization, Other)
  Sender: FDA-Public Use
  Company Number: US-Merck Healthcare KGaA-9343561

PATIENT
  Age: 52 Year
  Sex: Female

DRUGS (1)
  1. MAVENCLAD [Suspect]
     Active Substance: CLADRIBINE
     Indication: Multiple sclerosis
     Dosage: YEAR ONE THERAPY
     Route: 048
     Dates: start: 20211213

REACTIONS (4)
  - Myocardial infarction [Unknown]
  - Diabetes mellitus [Recovering/Resolving]
  - Peripheral swelling [Unknown]
  - Weight increased [Unknown]

NARRATIVE: CASE EVENT DATE: 20220714
